FAERS Safety Report 13068463 (Version 1)
Quarter: 2016Q4

REPORT INFORMATION
  Report Type: Spontaneous
  Country: US (occurrence: US)
  Receive Date: 20161227
  Receipt Date: 20161227
  Transmission Date: 20170207
  Serious: Yes (Life-Threatening, Hospitalization)
  Sender: FDA-Public Use
  Company Number: None

PATIENT
  Age: 70 Year
  Sex: Female
  Weight: 90.9 kg

DRUGS (6)
  1. OXYBUTININ [Concomitant]
     Active Substance: OXYBUTYNIN
  2. INVOKANA [Suspect]
     Active Substance: CANAGLIFLOZIN
     Indication: DIABETES MELLITUS
     Route: 048
  3. NORCO [Concomitant]
     Active Substance: ACETAMINOPHEN\HYDROCODONE BITARTRATE
  4. TRAMADOL. [Concomitant]
     Active Substance: TRAMADOL
  5. HUMOLOG INSULIN [Concomitant]
  6. LEVEMIR [Concomitant]
     Active Substance: INSULIN DETEMIR

REACTIONS (2)
  - Nausea [None]
  - Vomiting projectile [None]

NARRATIVE: CASE EVENT DATE: 20161226
